FAERS Safety Report 9697891 (Version 1)
Quarter: 2013Q4

REPORT INFORMATION
  Report Type: Spontaneous
  Country: US (occurrence: None)
  Receive Date: 20131120
  Receipt Date: 20131120
  Transmission Date: 20140711
  Serious: Yes (Other)
  Sender: FDA-Public Use
  Company Number: None

PATIENT
  Sex: 0

DRUGS (1)
  1. HORMONE COMPOUNDING. [Suspect]

REACTIONS (3)
  - Medication error [None]
  - Product packaging issue [None]
  - Drug dispensing error [None]
